FAERS Safety Report 10802648 (Version 1)
Quarter: 2015Q1

REPORT INFORMATION
  Report Type: Spontaneous
  Country: US (occurrence: US)
  Receive Date: 20150217
  Receipt Date: 20150217
  Transmission Date: 20150721
  Serious: No
  Sender: FDA-Public Use
  Company Number: US-BRACCO-011542

PATIENT
  Age: 68 Year
  Sex: Female

DRUGS (1)
  1. ISOVUE-M [Suspect]
     Active Substance: IOPAMIDOL
     Indication: NERVE BLOCK
     Route: 037
     Dates: start: 20141104, end: 20141104

REACTIONS (3)
  - No adverse event [Unknown]
  - Incorrect route of drug administration [Unknown]
  - Drug ineffective [Unknown]

NARRATIVE: CASE EVENT DATE: 20141104
